FAERS Safety Report 7915811-5 (Version None)
Quarter: 2011Q4

REPORT INFORMATION
  Report Type: 
  Country: None (occurrence: None)
  Receive Date: 20111115
  Receipt Date: 20111109
  Transmission Date: 20120403
  Serious: Yes (Other)
  Sender: FDA-Public Use
  Company Number: GXKR2011DE003268

PATIENT
  Age: 65 Year
  Sex: Male

DRUGS (1)
  1. OMEP PLUS [Suspect]
     Indication: HELICOBACTER INFECTION
     Route: 048

REACTIONS (1)
  - HAEMATOCHEZIA [None]
